FAERS Safety Report 14805939 (Version 1)
Quarter: 2018Q1

REPORT INFORMATION
  Report Type: Spontaneous
  Country: US (occurrence: US)
  Receive Date: 20180330
  Receipt Date: 20180330
  Transmission Date: 20180509
  Serious: Yes (Other)
  Sender: FDA-Public Use
  Company Number: None

PATIENT

DRUGS (1)
  1. INFUVITE [Suspect]
     Active Substance: VITAMINS
     Dosage: INTRAVENOUS (NOT OTHERWISE SPECIFIED)
     Route: 041

REACTIONS (2)
  - Product label issue [None]
  - Product label confusion [None]

NARRATIVE: CASE EVENT DATE: 20180327
